FAERS Safety Report 8817957 (Version 1)
Quarter: 2012Q4

REPORT INFORMATION
  Report Type: 
  Country: US (occurrence: US)
  Receive Date: 20121001
  Receipt Date: 20121001
  Transmission Date: 20130627
  Serious: No
  Sender: FDA-Public Use
  Company Number: US-ASTRAZENECA-2012SE69887

PATIENT
  Age: 69 Year
  Sex: Male
  Weight: 78 kg

DRUGS (6)
  1. NEXIUM [Suspect]
     Indication: GASTRITIS
     Route: 048
     Dates: start: 201209
  2. NEXIUM [Suspect]
     Indication: GASTROOESOPHAGEAL REFLUX DISEASE
     Route: 048
     Dates: start: 201209
  3. NEXIUM [Suspect]
     Indication: GASTROOESOPHAGEAL REFLUX DISEASE
     Route: 048
     Dates: start: 201209
  4. NEXIUM [Suspect]
     Indication: DYSPEPSIA
     Route: 048
     Dates: start: 201209
  5. TRAMADOL [Concomitant]
     Indication: PAIN
  6. TESTOSTERONE THERAPY [Concomitant]

REACTIONS (3)
  - Pain [Unknown]
  - Dry mouth [Not Recovered/Not Resolved]
  - Off label use [Unknown]
